FAERS Safety Report 9655967 (Version 1)
Quarter: 2013Q4

REPORT INFORMATION
  Report Type: Spontaneous
  Country: US (occurrence: None)
  Receive Date: 20131029
  Receipt Date: 20131029
  Transmission Date: 20140711
  Serious: Yes (Other)
  Sender: FDA-Public Use
  Company Number: None

PATIENT
  Age: 36 Year
  Sex: Female
  Weight: 58.51 kg

DRUGS (1)
  1. LATUDA [Suspect]
     Indication: AFFECTIVE DISORDER
     Dosage: 1 PILL ONCE DAILY TAKEN BY MOUTH
     Dates: start: 20131223

REACTIONS (3)
  - Dizziness [None]
  - Crying [None]
  - Feeling abnormal [None]
